FAERS Safety Report 4597560-7 (Version None)
Quarter: 2005Q1

REPORT INFORMATION
  Report Type: 
  Country: None (occurrence: None)
  Receive Date: 20050228
  Receipt Date: 20050228
  Transmission Date: 20050727
  Serious: Yes (Other)
  Sender: FDA-Public Use
  Company Number: None

PATIENT
  Age: 59 Year
  Sex: Female

DRUGS (1)
  1. DURAGESIC-100 [Suspect]
     Dosage: 1 TOPICAL Q 3 DAYS

REACTIONS (1)
  - NAUSEA [None]
